FAERS Safety Report 8170885-4 (Version None)
Quarter: 2012Q1

REPORT INFORMATION
  Report Type: 
  Country: None (occurrence: None)
  Receive Date: 20120228
  Receipt Date: 20120221
  Transmission Date: 20120608
  Serious: Yes (Hospitalization)
  Sender: FDA-Public Use
  Company Number: FR-UCBSA-052045

PATIENT
  Age: 36 Year
  Sex: Male

DRUGS (3)
  1. KEPPRA [Suspect]
     Indication: EPILEPSY
     Route: 048
     Dates: start: 20111215, end: 20120117
  2. TEGRETOL [Suspect]
     Indication: EPILEPSY
     Dosage: DAILY DOSE:100 MG
     Route: 048
     Dates: start: 20111215, end: 20120117
  3. IBUPROFEN [Suspect]
     Dosage: DAILY DOSE:400 MG
     Route: 048
     Dates: start: 20120113, end: 20120117

REACTIONS (4)
  - MYOCARDITIS [None]
  - DRUG RASH WITH EOSINOPHILIA AND SYSTEMIC SYMPTOMS [None]
  - PANCREATITIS [None]
  - HEPATITIS ACUTE [None]
